FAERS Safety Report 5414901-9 (Version None)
Quarter: 2007Q3

REPORT INFORMATION
  Report Type: 
  Country: None (occurrence: None)
  Receive Date: 20070813
  Receipt Date: 20070813
  Transmission Date: 20080115
  Serious: Yes (Disabling)
  Sender: FDA-Public Use
  Company Number: None

PATIENT
  Age: 60 Year
  Sex: Male
  Weight: 69.4003 kg

DRUGS (1)
  1. EMSAM [Suspect]
     Indication: OBSESSIVE-COMPULSIVE DISORDER
     Dosage: 20MGS (6 MG/24H) QD SKIN
     Route: 062
     Dates: start: 20061101

REACTIONS (3)
  - CONDITION AGGRAVATED [None]
  - IRRITABILITY [None]
  - NEGATIVE THOUGHTS [None]
